FAERS Safety Report 25259990 (Version 1)
Quarter: 2025Q2

REPORT INFORMATION
  Report Type: Spontaneous
  Country: US (occurrence: None)
  Receive Date: 20250501
  Receipt Date: 20250501
  Transmission Date: 20250717
  Serious: Yes (Life-Threatening, Other)
  Sender: FDA-CTU
  Company Number: None

PATIENT
  Age: 30 Year
  Sex: Female

DRUGS (9)
  1. XANAX [Suspect]
     Active Substance: ALPRAZOLAM
  2. LAMOTRIGINE [Concomitant]
     Active Substance: LAMOTRIGINE
  3. MIDODRINE [Concomitant]
     Active Substance: MIDODRINE
  4. PRILOSEC [Concomitant]
     Active Substance: OMEPRAZOLE MAGNESIUM
  5. POTASSIUM CHLORIDE [Concomitant]
     Active Substance: POTASSIUM CHLORIDE
  6. PERCOCET [Concomitant]
     Active Substance: ACETAMINOPHEN\OXYCODONE HYDROCHLORIDE
  7. OXYCODONE [Concomitant]
     Active Substance: OXYCODONE
  8. MAGNESIUM [Concomitant]
     Active Substance: MAGNESIUM
  9. TUMS [Concomitant]
     Active Substance: CALCIUM CARBONATE

REACTIONS (3)
  - Withdrawal syndrome [None]
  - Inappropriate schedule of product discontinuation [None]
  - Wrong technique in product usage process [None]

NARRATIVE: CASE EVENT DATE: 20250430
